FAERS Safety Report 9148958 (Version 2)
Quarter: 2013Q2

REPORT INFORMATION
  Report Type: Spontaneous
  Country: US (occurrence: US)
  Receive Date: 20130308
  Receipt Date: 20130529
  Transmission Date: 20140414
  Serious: Yes (Other)
  Sender: FDA-Public Use
  Company Number: US-UCBSA-079878

PATIENT
  Sex: Male
  Weight: 94.34 kg

DRUGS (15)
  1. VIMPAT [Suspect]
     Indication: CONVULSION
     Dates: start: 2011
  2. ZYRTEC [Concomitant]
     Indication: HYPERSENSITIVITY
  3. COUMADIN [Concomitant]
     Indication: ANTICOAGULANT THERAPY
     Dosage: 7.5-10 MG AM (AS DIR)
  4. AMLODIPINE [Concomitant]
     Indication: BLOOD PRESSURE
  5. POTASSIUM [Concomitant]
     Indication: MINERAL SUPPLEMENTATION
  6. LISINOPRIL [Concomitant]
     Indication: BLOOD PRESSURE
  7. METOPROLOL [Concomitant]
     Indication: BLOOD PRESSURE
  8. HCTZ [Concomitant]
     Indication: BLOOD PRESSURE
     Dosage: 25 MG AM/3-4 X WK
  9. LOVASTATIN [Concomitant]
     Indication: BLOOD CHOLESTEROL
     Dosage: PM
  10. DOXAZOSIN [Concomitant]
     Indication: BLOOD PRESSURE
     Dosage: PM
  11. DETROL LA [Concomitant]
     Indication: URINARY INCONTINENCE
     Dosage: PM
  12. DETROL LA [Concomitant]
     Indication: SWEAT GLAND DISORDER
     Dosage: PM
  13. MORPHINE [Concomitant]
     Indication: MUSCULOSKELETAL PAIN
  14. PEPCID [Concomitant]
     Indication: GASTROOESOPHAGEAL REFLUX DISEASE
     Dosage: UNKNOWN DOSE AS NEEDED
  15. NEXIUM [Concomitant]
     Indication: GASTROOESOPHAGEAL REFLUX DISEASE
     Dosage: UNKNOWN DOSE AS NEEDED

REACTIONS (1)
  - Cataract [Unknown]
